FAERS Safety Report 6295509-2 (Version None)
Quarter: 2009Q3

REPORT INFORMATION
  Report Type: 
  Country: None (occurrence: None)
  Receive Date: 20090731
  Receipt Date: 20090721
  Transmission Date: 20100115
  Serious: Yes (Hospitalization)
  Sender: FDA-Public Use
  Company Number: 2009008764

PATIENT
  Sex: Male

DRUGS (1)
  1. MODAFINIL [Suspect]
     Dosage: (5 IN 1 D),ORAL
     Route: 048

REACTIONS (1)
  - HOSPITALISATION [None]
